FAERS Safety Report 17444492 (Version 1)
Quarter: 2020Q1

REPORT INFORMATION
  Report Type: Spontaneous
  Country: US (occurrence: US)
  Receive Date: 20200221
  Receipt Date: 20200221
  Transmission Date: 20200409
  Serious: Yes (Disabling, Other)
  Sender: FDA-Public Use
  Company Number: US-REGENERON PHARMACEUTICALS, INC.-2020-12161

PATIENT

DRUGS (6)
  1. EYLEA [Suspect]
     Active Substance: AFLIBERCEPT
     Indication: NEOVASCULAR AGE-RELATED MACULAR DEGENERATION
     Dosage: 2 MG, LEFT EYE, EVERY 6-8 WEEKS
     Route: 031
     Dates: start: 20190719
  2. PRED ACETATE [Concomitant]
     Indication: PRODUCT USED FOR UNKNOWN INDICATION
     Dosage: OD
  3. LATANOPROST. [Concomitant]
     Active Substance: LATANOPROST
     Indication: PRODUCT USED FOR UNKNOWN INDICATION
     Dosage: OD
  4. EYLEA [Suspect]
     Active Substance: AFLIBERCEPT
     Dosage: 2 MG, EVERY 6-8 WEEKS, LEFT EYE, LAST DOSE
     Route: 031
     Dates: start: 20200103, end: 20200103
  5. BRIMONIDINE [Concomitant]
     Active Substance: BRIMONIDINE TARTRATE
     Indication: PRODUCT USED FOR UNKNOWN INDICATION
     Dosage: OD
  6. TIMOLOL. [Concomitant]
     Active Substance: TIMOLOL
     Indication: PRODUCT USED FOR UNKNOWN INDICATION
     Dosage: OD

REACTIONS (3)
  - Vitritis [Recovering/Resolving]
  - Non-infectious endophthalmitis [Recovering/Resolving]
  - Blindness transient [Recovering/Resolving]

NARRATIVE: CASE EVENT DATE: 20200106
